FAERS Safety Report 7689067-5 (Version None)
Quarter: 2011Q3

REPORT INFORMATION
  Report Type: 
  Country: None (occurrence: None)
  Receive Date: 20110817
  Receipt Date: 20110811
  Transmission Date: 20111222
  Serious: Yes (Hospitalization, Disabling, Other)
  Sender: FDA-Public Use
  Company Number: US-MERCK-1012USA02524

PATIENT
  Age: 55 Year
  Sex: Female
  Weight: 74 kg

DRUGS (12)
  1. FOSAMAX [Suspect]
     Route: 048
     Dates: start: 20000801, end: 20001115
  2. FOSAMAX [Suspect]
     Route: 048
     Dates: start: 20000801, end: 20001115
  3. CALCIUM (UNSPECIFIED) [Concomitant]
     Dosage: ^OVER THE LAST 20 YEARS^
     Route: 048
     Dates: start: 19900101
  4. BONIVA [Suspect]
     Indication: OSTEOPENIA
     Route: 048
     Dates: start: 20070201, end: 20090401
  5. FOSAMAX [Suspect]
     Route: 048
     Dates: start: 20001219, end: 20070201
  6. VITAMIN D (UNSPECIFIED) [Concomitant]
     Dosage: ^OVER THE LAST 20 YEARS^
     Route: 048
     Dates: start: 19900101
  7. FOSAMAX [Suspect]
     Indication: OSTEOPOROSIS
     Route: 048
     Dates: start: 19990713
  8. FOSAMAX [Suspect]
     Indication: OSTEOPENIA
     Route: 048
     Dates: start: 19990713
  9. FOSAMAX [Suspect]
     Route: 048
     Dates: start: 20000411, end: 20000812
  10. ESTROGENS (UNSPECIFIED) [Concomitant]
     Indication: OESTROGEN REPLACEMENT THERAPY
     Route: 048
     Dates: start: 19870101
  11. FOSAMAX [Suspect]
     Route: 048
     Dates: start: 20000411, end: 20000812
  12. FOSAMAX [Suspect]
     Route: 048
     Dates: start: 20001219, end: 20070201

REACTIONS (22)
  - FRACTURE NONUNION [None]
  - LOW TURNOVER OSTEOPATHY [None]
  - BURSITIS [None]
  - FALL [None]
  - MULTIPLE FRACTURES [None]
  - IMPAIRED HEALING [None]
  - HIP FRACTURE [None]
  - DENTAL CARIES [None]
  - SINUS DISORDER [None]
  - FEMUR FRACTURE [None]
  - OSTEOPOROSIS [None]
  - TOOTH FRACTURE [None]
  - OSTEOARTHRITIS [None]
  - URINARY INCONTINENCE [None]
  - DRUG HYPERSENSITIVITY [None]
  - ROAD TRAFFIC ACCIDENT [None]
  - GALLBLADDER DISORDER [None]
  - DYSGEUSIA [None]
  - ARTHROPATHY [None]
  - GINGIVAL PAIN [None]
  - GASTROOESOPHAGEAL REFLUX DISEASE [None]
  - HAEMORRHOIDS [None]
